FAERS Safety Report 12496765 (Version 1)
Quarter: 2016Q2

REPORT INFORMATION
  Report Type: Spontaneous
  Country: US (occurrence: US)
  Receive Date: 20160624
  Receipt Date: 20160624
  Transmission Date: 20160815
  Serious: Yes (Hospitalization)
  Sender: FDA-Public Use
  Company Number: US-MEDA-2016060074

PATIENT
  Age: 70 Year
  Sex: Female
  Weight: 64 kg

DRUGS (3)
  1. DEMADEX [Suspect]
     Active Substance: TORSEMIDE
     Indication: OEDEMA
     Route: 048
  2. DEMADEX [Suspect]
     Active Substance: TORSEMIDE
     Indication: OEDEMA
     Route: 048
  3. TORASEMIDE [Concomitant]
     Active Substance: TORSEMIDE

REACTIONS (11)
  - Erythema [Not Recovered/Not Resolved]
  - Pruritus [Recovered/Resolved]
  - Product quality issue [Unknown]
  - Gait disturbance [Not Recovered/Not Resolved]
  - Skin haemorrhage [Recovered/Resolved]
  - Peripheral swelling [Unknown]
  - Pain [Not Recovered/Not Resolved]
  - Drug ineffective [Unknown]
  - Hip fracture [Recovered/Resolved with Sequelae]
  - Fall [Recovered/Resolved]
  - Drug dose omission [Unknown]

NARRATIVE: CASE EVENT DATE: 2016
